FAERS Safety Report 10990429 (Version 1)
Quarter: 2015Q2

REPORT INFORMATION
  Report Type: Not Available
  Country: CH (occurrence: CH)
  Receive Date: 20150406
  Receipt Date: 20150406
  Transmission Date: 20150821
  Serious: Yes (Life-Threatening, Hospitalization)
  Sender: FDA-Public Use
  Company Number: CH-MUNDIPHARMA DS AND PHARMACOVIGILANCE-DEU-2015-0016540

PATIENT
  Age: 29 Year
  Sex: Female
  Weight: 65 kg

DRUGS (8)
  1. QUETIAPIN [Suspect]
     Active Substance: QUETIAPINE
     Indication: PERSONALITY DISORDER
     Dosage: 200 MG, Q12H
     Route: 048
     Dates: start: 20141215, end: 20150107
  2. CELEBREX [Suspect]
     Active Substance: CELECOXIB
     Indication: PAIN
     Dosage: 200 MG, Q12H
     Route: 048
     Dates: start: 201411, end: 20150106
  3. TARGIN TABLETTEN RETARD [Suspect]
     Active Substance: NALOXONE HYDROCHLORIDE\OXYCODONE HYDROCHLORIDE
     Indication: PAIN
     Dosage: 30/15 MG, Q12H
     Route: 048
     Dates: start: 201411, end: 20150106
  4. XEPLION                            /05724801/ [Suspect]
     Active Substance: PALIPERIDONE PALMITATE
     Indication: PERSONALITY DISORDER
     Dosage: 100 MG/ML, SEE TEXT
     Route: 042
     Dates: start: 20141219
  5. TEMESTA                            /00273201/ [Suspect]
     Active Substance: LORAZEPAM
     Indication: PERSONALITY DISORDER
     Dosage: 2.5 MG, DAILY
     Route: 048
     Dates: start: 201411, end: 20150107
  6. NOVALGIN [Suspect]
     Active Substance: METAMIZOLE SODIUM
     Indication: PAIN
     Dosage: 1000 MG, Q12H
     Route: 048
     Dates: start: 201411, end: 20150106
  7. TRITTICO [Suspect]
     Active Substance: TRAZODONE HYDROCHLORIDE
     Indication: PAIN
     Dosage: 100 MG, DAILY
     Route: 048
     Dates: start: 201411, end: 20150106
  8. PANTOZOL [Suspect]
     Active Substance: PANTOPRAZOLE SODIUM
     Indication: PROPHYLAXIS
     Route: 065

REACTIONS (2)
  - Agranulocytosis [Recovering/Resolving]
  - Leukopenia [Recovering/Resolving]

NARRATIVE: CASE EVENT DATE: 20150106
